FAERS Safety Report 8788555 (Version 1)
Quarter: 2012Q4

REPORT INFORMATION
  Report Type: 
  Country: US (occurrence: US)
  Receive Date: 20120914
  Receipt Date: 20120914
  Transmission Date: 20130627
  Serious: No
  Sender: FDA-Public Use
  Company Number: US-VERTEX PHARMACEUTICAL INC.-2012-019824

PATIENT
  Age: 66 None
  Sex: Male
  Weight: 96.15 kg

DRUGS (7)
  1. INCIVEK [Suspect]
     Indication: HEPATITIS C
     Dosage: 750 mg, tid
     Route: 048
     Dates: start: 20120617
  2. PEGASYS [Concomitant]
     Indication: HEPATITIS C
     Dosage: 180 mg, UNK
     Route: 058
     Dates: start: 20120617
  3. RIBAVIRIN [Concomitant]
     Indication: HEPATITIS C
     Dosage: 400 mg, bid
     Route: 048
     Dates: start: 20120617
  4. ALLOPURINOL [Concomitant]
     Dosage: 300 mg, qd
     Route: 048
  5. NIASPAN [Concomitant]
     Dosage: 500 mg, qd
     Route: 048
  6. ASPIRIN [Concomitant]
  7. IRON [Concomitant]

REACTIONS (5)
  - Drug dose omission [Not Recovered/Not Resolved]
  - Dyspnoea [Not Recovered/Not Resolved]
  - Fatigue [Not Recovered/Not Resolved]
  - Rash papular [Recovered/Resolved]
  - Pruritus generalised [Not Recovered/Not Resolved]
